FAERS Safety Report 8920314 (Version 1)
Quarter: 2012Q4

REPORT INFORMATION
  Report Type: 
  Country: US (occurrence: US)
  Receive Date: 20121122
  Receipt Date: 20121122
  Transmission Date: 20130627
  Serious: Yes (Hospitalization, Other)
  Sender: FDA-Public Use
  Company Number: PHEH2012US022596

PATIENT
  Sex: Female

DRUGS (4)
  1. TEGRETOL [Suspect]
     Dosage: 35 ml, UNK
     Route: 048
  2. ZOLOFT [Concomitant]
  3. VITAMIN B12 [Concomitant]
  4. FOLIC ACID [Concomitant]

REACTIONS (11)
  - Cough [Not Recovered/Not Resolved]
  - Pyrexia [Not Recovered/Not Resolved]
  - Dysphagia [Not Recovered/Not Resolved]
  - Weight decreased [Not Recovered/Not Resolved]
  - Electrolyte depletion [Not Recovered/Not Resolved]
  - Aphagia [Not Recovered/Not Resolved]
  - Pericardial effusion [Not Recovered/Not Resolved]
  - Malaise [Not Recovered/Not Resolved]
  - Epilepsy [Not Recovered/Not Resolved]
  - Mental disorder [Not Recovered/Not Resolved]
  - Dyspnoea [Not Recovered/Not Resolved]
